FAERS Safety Report 7048144-2 (Version None)
Quarter: 2010Q4

REPORT INFORMATION
  Report Type: 
  Country: None (occurrence: None)
  Receive Date: 20101014
  Receipt Date: 20101014
  Transmission Date: 20110411
  Serious: No
  Sender: FDA-Public Use
  Company Number: None

PATIENT
  Sex: Female

DRUGS (1)
  1. SAIZEN [Suspect]
     Dosage: 8.8 MG IJ
     Dates: start: 20080611

REACTIONS (2)
  - AFFECTIVE DISORDER [None]
  - CRYING [None]
